FAERS Safety Report 6265522-X (Version None)
Quarter: 2009Q3

REPORT INFORMATION
  Report Type: 
  Country: None (occurrence: None)
  Receive Date: 20090713
  Receipt Date: 20090709
  Transmission Date: 20100115
  Serious: Yes (Life-Threatening)
  Sender: FDA-Public Use
  Company Number: US-PFIZER INC-2009237935

PATIENT
  Sex: Male
  Weight: 74.83 kg

DRUGS (2)
  1. AMLODIPINE BESILATE, ATORVASTATIN CALCIUM [Suspect]
     Indication: HYPERTENSION
     Dosage: 5 MG/20 MG, 1X/DAY
     Route: 048
     Dates: start: 20080811
  2. ATACAND [Suspect]
     Indication: HYPERTENSION
     Dosage: 16 MG, 1X/DAY
     Route: 048
     Dates: start: 20070920

REACTIONS (2)
  - CARDIAC FAILURE CONGESTIVE [None]
  - RENAL FAILURE [None]
